FAERS Safety Report 17651186 (Version 9)
Quarter: 2020Q3

REPORT INFORMATION
  Report Type: Report from Study
  Country: GB (occurrence: GB)
  Receive Date: 20200409
  Receipt Date: 20200825
  Transmission Date: 20201102
  Serious: Yes (Hospitalization, Other)
  Sender: FDA-Public Use
  Company Number: GB-ROCHE-2551235

PATIENT
  Age: 70 Year
  Sex: Female
  Weight: 82 kg

DRUGS (10)
  1. DOXAZOSIN [Concomitant]
     Active Substance: DOXAZOSIN MESYLATE
     Indication: HYPERTENSION
     Route: 048
     Dates: start: 20200203
  2. VALSARTAN. [Concomitant]
     Active Substance: VALSARTAN
     Indication: HYPERTENSION
     Route: 065
     Dates: start: 20190101
  3. NIFEDIPINE. [Concomitant]
     Active Substance: NIFEDIPINE
     Indication: HYPERTENSION
     Route: 065
     Dates: start: 20190101
  4. LANSOPRAZOLE. [Concomitant]
     Active Substance: LANSOPRAZOLE
     Route: 048
     Dates: start: 20200218, end: 20200512
  5. HU5F9?G4 (ANTI?CD47 MONOCLONAL ANTIBODY) [Suspect]
     Active Substance: MAGROLIMAB
     Indication: TRANSITIONAL CELL CARCINOMA
     Dosage: DATE OF MOST RECENT DOSE (30 MG) OF STUDY DRUG HU5F9?G4 PRIOR TO AE ONSET 04/FEB/2020?PARTICIPANTS W
     Route: 042
     Dates: start: 20200128
  6. CARVEDILOL. [Concomitant]
     Active Substance: CARVEDILOL
     Indication: HYPERTENSION
     Dates: start: 20190615
  7. SANDO?K [Concomitant]
     Indication: HYPOKALAEMIA
     Route: 048
     Dates: start: 20200218, end: 20200221
  8. ATEZOLIZUMAB. [Suspect]
     Active Substance: ATEZOLIZUMAB
     Indication: TRANSITIONAL CELL CARCINOMA
     Dosage: DATE OF MOST RECENT DOSE (840 MG) OF STUDY DRUG ATEZOLIZUMAB PRIOR TO AE ONSET 28/JAN/2020.?ATEZOLIZ
     Route: 042
     Dates: start: 20200128
  9. CO?AMOXICLAV [Concomitant]
     Active Substance: AMOXICILLIN\CLAVULANATE POTASSIUM
     Indication: INFECTION
     Dosage: 125 + 500 MG
     Route: 048
     Dates: start: 20200211
  10. LANZOPRAZOL [Concomitant]
     Active Substance: LANSOPRAZOLE
     Route: 048
     Dates: start: 20200218

REACTIONS (3)
  - Cytokine release syndrome [Recovered/Resolved]
  - Immune-mediated hepatitis [Recovered/Resolved]
  - Pancytopenia [Recovered/Resolved]

NARRATIVE: CASE EVENT DATE: 20200211
